FAERS Safety Report 9416505 (Version 1)
Quarter: 2013Q3

REPORT INFORMATION
  Report Type: Spontaneous
  Country: US (occurrence: US)
  Receive Date: 20130724
  Receipt Date: 20130724
  Transmission Date: 20140515
  Serious: Yes (Hospitalization)
  Sender: FDA-Public Use
  Company Number: US-JNJFOC-20130708586

PATIENT
  Age: 53 Year
  Sex: Male

DRUGS (18)
  1. HALDOL [Suspect]
     Indication: PRODUCT USED FOR UNKNOWN INDICATION
     Route: 065
  2. EVEROLIMUS [Suspect]
     Indication: RENAL CELL CARCINOMA
     Route: 048
     Dates: start: 20130205, end: 20130213
  3. DILAUDID [Suspect]
     Indication: PRODUCT USED FOR UNKNOWN INDICATION
     Route: 065
     Dates: start: 20130215
  4. AMLODIPINE [Concomitant]
     Route: 065
     Dates: start: 200201
  5. BISACODYL [Concomitant]
     Route: 065
     Dates: start: 201101
  6. DOCUSATE SODIUM\SENNOSIDES [Concomitant]
     Route: 065
     Dates: start: 201101
  7. FUROSEMIDE [Concomitant]
     Route: 065
     Dates: start: 201211
  8. LANTUS [Concomitant]
     Route: 065
     Dates: start: 201111
  9. NOVOLOG [Concomitant]
     Route: 065
     Dates: start: 201111
  10. LEVOTHYROXINE [Concomitant]
     Route: 065
     Dates: start: 201001
  11. MEGESTROL [Concomitant]
     Route: 065
     Dates: start: 201212
  12. MIRALAX [Concomitant]
     Route: 065
     Dates: start: 201111
  13. ROSUVASTATIN [Concomitant]
     Route: 065
     Dates: start: 200202
  14. OMEPRAZOLE [Concomitant]
     Route: 065
     Dates: start: 20121127
  15. CELEXA [Concomitant]
     Route: 065
     Dates: start: 20130115
  16. ASA [Concomitant]
     Route: 065
     Dates: start: 20130215
  17. LORAZEPAM [Concomitant]
     Route: 065
     Dates: start: 20130218
  18. MELATONIN [Concomitant]
     Route: 065
     Dates: start: 20130218

REACTIONS (1)
  - Delirium [Recovered/Resolved]
